FAERS Safety Report 7110589-X (Version None)
Quarter: 2010Q4

REPORT INFORMATION
  Report Type: 
  Country: None (occurrence: None)
  Receive Date: 20101118
  Receipt Date: 20101111
  Transmission Date: 20110411
  Serious: Yes (Other)
  Sender: FDA-Public Use
  Company Number: FI-ROCHE-724339

PATIENT
  Age: 50 Year
  Sex: Female

DRUGS (8)
  1. XELODA [Suspect]
     Dosage: FREQUENCY: TWICE DAILY ON THE DAYS 1-14 FOLLOWED BY 7 DAY REST.
     Route: 048
     Dates: start: 20101103
  2. TARCEVA [Suspect]
     Dosage: DOSING FREQUENCY: ONCE DAILY.
     Route: 048
     Dates: start: 20100823, end: 20100901
  3. GEMCITABINE [Concomitant]
     Dosage: DOSING FREQ: ONCE A WEEKLY FOR 5 WEEKS.
     Dates: start: 20100825
  4. GEMCITABINE [Concomitant]
     Dosage: FREQUENCY: ONCE DAILY UNTIL THE END OF PACKAGE.
  5. OXALIPLATIN [Concomitant]
     Route: 042
     Dates: start: 20101103
  6. ACETYLSALICYLIC ACID SRT [Concomitant]
  7. OMEPRAZOLE [Concomitant]
  8. FENTANYL [Concomitant]
     Dosage: DRUG NAME: ISTANYL

REACTIONS (10)
  - ABDOMINAL PAIN UPPER [None]
  - CATHETER SITE ERYTHEMA [None]
  - CHOLECYSTITIS [None]
  - CONSTIPATION [None]
  - DISEASE PROGRESSION [None]
  - FATIGUE [None]
  - HEADACHE [None]
  - ILEUS [None]
  - NAUSEA [None]
  - PYREXIA [None]
